FAERS Safety Report 9314826 (Version 1)
Quarter: 2013Q2

REPORT INFORMATION
  Report Type: Spontaneous
  Country: US (occurrence: US)
  Receive Date: 20130529
  Receipt Date: 20130529
  Transmission Date: 20140414
  Serious: No
  Sender: FDA-Public Use
  Company Number: US-PFIZER INC-2013159914

PATIENT
  Age: 83 Year
  Sex: Female

DRUGS (3)
  1. LIPITOR [Suspect]
     Dosage: 20 MG, 1X/DAY
  2. NEURONTIN [Suspect]
     Dosage: 300 MG, 3X/DAY
  3. GLUCOTROL [Suspect]
     Dosage: 5 MG, 1X/DAY

REACTIONS (1)
  - Wound [Unknown]
